FAERS Safety Report 14928112 (Version 3)
Quarter: 2018Q3

REPORT INFORMATION
  Report Type: Spontaneous
  Country: US (occurrence: US)
  Receive Date: 20180523
  Receipt Date: 20180830
  Transmission Date: 20181010
  Serious: Yes (Hospitalization, Other)
  Sender: FDA-Public Use
  Company Number: US-AMGEN-USASP2018066527

PATIENT
  Age: 73 Year
  Sex: Female

DRUGS (20)
  1. PROBIOTIC [Concomitant]
     Active Substance: PROBIOTICS NOS
     Indication: BLOOD POTASSIUM ABNORMAL
     Dosage: 1 MG, QD
  2. BIOTIN [Concomitant]
     Active Substance: BIOTIN
     Dosage: 250 MG, UNK
  3. PROLIA [Suspect]
     Active Substance: DENOSUMAB
     Indication: OSTEOPOROSIS POSTMENOPAUSAL
  4. RESTASIS [Concomitant]
     Active Substance: CYCLOSPORINE
     Indication: DRY EYE
     Dosage: UNK
     Route: 047
  5. POTASSIUM [Concomitant]
     Active Substance: POTASSIUM
     Indication: BLOOD POTASSIUM ABNORMAL
     Dosage: 550 MG, QD
  6. VITAMIN C [Concomitant]
     Active Substance: ASCORBIC ACID
     Indication: BLOOD POTASSIUM ABNORMAL
     Dosage: 1000 MG, QD
  7. PREDNISONE. [Concomitant]
     Active Substance: PREDNISONE
     Dosage: 2.5 MG, QD
  8. METOPROLOL. [Concomitant]
     Active Substance: METOPROLOL
     Dosage: 50 MG, HALF QD
  9. CALTRATE WITH VITAMIN D [Concomitant]
     Active Substance: CALCIUM CARBONATE\CHOLECALCIFEROL
     Indication: BLOOD POTASSIUM ABNORMAL
     Dosage: 600 MG, QD
  10. CLARITIN [Concomitant]
     Active Substance: LORATADINE
     Indication: SINUS DISORDER
     Dosage: UNK
  11. VITAMIN E [Concomitant]
     Active Substance: .ALPHA.-TOCOPHEROL
     Indication: BLOOD POTASSIUM ABNORMAL
     Dosage: 400 IU, UNK
  12. CENTRUM SILVER +50 [Concomitant]
     Indication: BLOOD POTASSIUM ABNORMAL
     Dosage: UNK, QD
  13. ACTEMRA [Concomitant]
     Active Substance: TOCILIZUMAB
     Indication: RHEUMATOID ARTHRITIS
     Dosage: 600 MG, QMO
     Dates: start: 20140731
  14. SPIRONOLACTONE. [Concomitant]
     Active Substance: SPIRONOLACTONE
     Dosage: 25 MG, QD
  15. TYLENOL 8 HR ARTHRITIS PAIN [Concomitant]
     Active Substance: ACETAMINOPHEN
     Indication: RHEUMATOID ARTHRITIS
     Dosage: 600 MG, BID
  16. TYLENOL 8 HR ARTHRITIS PAIN [Concomitant]
     Active Substance: ACETAMINOPHEN
     Dosage: 600 MG, QID
  17. OMEGA 369 [Concomitant]
     Active Substance: FISH OIL
     Indication: BLOOD POTASSIUM ABNORMAL
     Dosage: UNK, QD
  18. OSTEO BI?FLEX [Concomitant]
     Active Substance: CHONDROITIN SULFATE A\GLUCOSAMINE
     Indication: BLOOD POTASSIUM ABNORMAL
     Dosage: UNK, QD
  19. PROLIA [Suspect]
     Active Substance: DENOSUMAB
     Indication: BONE DENSITY DECREASED
     Dosage: 60 MG, Q6MO
     Route: 058
     Dates: start: 20180307, end: 20180307
  20. BIOTIN [Concomitant]
     Active Substance: BIOTIN
     Indication: BLOOD POTASSIUM ABNORMAL
     Dosage: 500 MG, UNK

REACTIONS (13)
  - Pain in extremity [Not Recovered/Not Resolved]
  - Peripheral swelling [Not Recovered/Not Resolved]
  - Ear swelling [Unknown]
  - Lip swelling [Unknown]
  - Gingival swelling [Unknown]
  - Joint swelling [Unknown]
  - Necrotising fasciitis [Unknown]
  - Gingival pain [Not Recovered/Not Resolved]
  - Hypoaesthesia [Not Recovered/Not Resolved]
  - Cellulitis [Unknown]
  - Rheumatoid arthritis [Recovering/Resolving]
  - Adverse drug reaction [Not Recovered/Not Resolved]
  - Blood potassium decreased [Unknown]

NARRATIVE: CASE EVENT DATE: 20180307
